FAERS Safety Report 23351871 (Version 1)
Quarter: 2023Q4

REPORT INFORMATION
  Report Type: Spontaneous
  Country: CN (occurrence: None)
  Receive Date: 20231229
  Receipt Date: 20231229
  Transmission Date: 20240110
  Serious: Yes (Life-Threatening, Hospitalization, Other)
  Sender: FDA-Public Use
  Company Number: 2023A295525

PATIENT
  Age: 28461 Day
  Sex: Male
  Weight: 55 kg

DRUGS (4)
  1. DAPAGLIFLOZIN [Suspect]
     Active Substance: DAPAGLIFLOZIN
     Indication: Diabetes mellitus
     Route: 048
     Dates: start: 20231205, end: 20231218
  2. METFORMIN HYDROCHLORIDE [Suspect]
     Active Substance: METFORMIN HYDROCHLORIDE
     Indication: Diabetes mellitus
     Route: 048
     Dates: start: 20231205, end: 20231218
  3. INSULIN HUMAN [Suspect]
     Active Substance: INSULIN HUMAN
     Indication: Diabetes mellitus
     Route: 058
     Dates: start: 20231205, end: 20231218
  4. ACARBOSE [Suspect]
     Active Substance: ACARBOSE
     Indication: Diabetes mellitus
     Route: 048
     Dates: start: 20231205, end: 20231218

REACTIONS (5)
  - Palpitations [Recovering/Resolving]
  - Asthenia [Recovering/Resolving]
  - Vision blurred [Unknown]
  - Hypoaesthesia [Unknown]
  - Discomfort [Unknown]

NARRATIVE: CASE EVENT DATE: 20231218
